FAERS Safety Report 8564150-0 (Version None)
Quarter: 2012Q3

REPORT INFORMATION
  Report Type: 
  Country: None (occurrence: None)
  Receive Date: 20120803
  Receipt Date: 20120724
  Transmission Date: 20120928
  Serious: Yes (Hospitalization, Other)
  Sender: FDA-Public Use
  Company Number: US-JNJFOC-20120714568

PATIENT
  Sex: Female
  Weight: 50.4 kg

DRUGS (5)
  1. REMICADE [Suspect]
     Indication: INFLAMMATORY BOWEL DISEASE
     Route: 042
     Dates: start: 20070302
  2. OMEPRAZOLE [Concomitant]
  3. MERCAPTOPURINE [Concomitant]
  4. ZOLOFT [Concomitant]
  5. RISPERDAL [Concomitant]

REACTIONS (1)
  - INFECTION [None]
